FAERS Safety Report 4657554-X (Version None)
Quarter: 2005Q2

REPORT INFORMATION
  Report Type: 
  Country: None (occurrence: None)
  Receive Date: 20050510
  Receipt Date: 20050428
  Transmission Date: 20051028
  Serious: Yes (Hospitalization)
  Sender: FDA-Public Use
  Company Number: FR-BRISTOL-MYERS SQUIBB COMPANY-12949137

PATIENT
  Age: 77 Year
  Sex: Female

DRUGS (2)
  1. COAPROVEL [Suspect]
     Indication: HYPERTENSION
     Route: 048
  2. LOPRIL [Suspect]
     Indication: HYPERTENSION
     Route: 048

REACTIONS (5)
  - NAIL DYSTROPHY [None]
  - ONYCHOLYSIS [None]
  - PAIN [None]
  - PRURITUS [None]
  - RASH [None]
